FAERS Safety Report 16628187 (Version 1)
Quarter: 2019Q3

REPORT INFORMATION
  Report Type: Spontaneous
  Country: GB (occurrence: GB)
  Receive Date: 20190724
  Receipt Date: 20190724
  Transmission Date: 20191004
  Serious: Yes (Hospitalization)
  Sender: FDA-Public Use
  Company Number: GB-ANIPHARMA-2019-UK-000115

PATIENT
  Age: 71 Year
  Sex: Male

DRUGS (5)
  1. RAMIPRIL. [Concomitant]
     Active Substance: RAMIPRIL
     Dosage: 10 MG DAILY
  2. SACUBITRIL/VALSARTAN [Suspect]
     Active Substance: SACUBITRIL\VALSARTAN
     Indication: CARDIAC FAILURE
     Dosage: 49 MG/51 MG TWICE DAILY
  3. MEXILETINE HYDROCHLORIDE (NON-SPECIFIC) [Suspect]
     Active Substance: MEXILETINE HYDROCHLORIDE
     Indication: CARDIAC FAILURE
     Dosage: 200 MG 3 TIMES DAILY
  4. BISOPROLOL [Concomitant]
     Active Substance: BISOPROLOL
     Dosage: 5 MG DAILY
  5. EPLERENONE. [Concomitant]
     Active Substance: EPLERENONE
     Dosage: 50 MG DAILY

REACTIONS (2)
  - Ventricular tachycardia [Recovered/Resolved]
  - Drug interaction [Recovered/Resolved]
